FAERS Safety Report 12354080 (Version 5)
Quarter: 2019Q1

REPORT INFORMATION
  Report Type: Spontaneous
  Country: CA (occurrence: CA)
  Receive Date: 20160511
  Receipt Date: 20190110
  Transmission Date: 20190417
  Serious: Yes (Other)
  Sender: FDA-Public Use
  Company Number: CA-009507513-1601CAN007548

PATIENT
  Age: 71 Year
  Sex: Male
  Weight: 68.5 kg

DRUGS (2)
  1. IRON (UNSPECIFIED) [Concomitant]
     Active Substance: IRON
     Indication: MINERAL SUPPLEMENTATION
  2. KEYTRUDA [Suspect]
     Active Substance: PEMBROLIZUMAB
     Indication: METASTATIC MALIGNANT MELANOMA
     Dosage: 137 MG, (2MG/KG), Q3W
     Route: 042
     Dates: start: 20160115

REACTIONS (43)
  - Syncope [Recovered/Resolved]
  - Feeling abnormal [Unknown]
  - Pain [Unknown]
  - Pain [Unknown]
  - Dizziness [Recovered/Resolved]
  - Fatigue [Unknown]
  - Appetite disorder [Unknown]
  - Malaise [Unknown]
  - Dyspnoea [Unknown]
  - Nausea [Recovered/Resolved]
  - Depression [Unknown]
  - Appetite disorder [Unknown]
  - Depression [Unknown]
  - Nausea [Unknown]
  - Asthenia [Recovered/Resolved]
  - Tooth abscess [Recovered/Resolved]
  - Disturbance in attention [Unknown]
  - Memory impairment [Unknown]
  - Psychiatric symptom [Unknown]
  - Appetite disorder [Unknown]
  - Anxiety [Unknown]
  - Fatigue [Unknown]
  - Adjustment disorder [Unknown]
  - Somnolence [Unknown]
  - Chest pain [Recovered/Resolved]
  - Fear [Unknown]
  - Inappropriate schedule of product administration [Unknown]
  - Fall [Unknown]
  - Anxiety [Unknown]
  - Anxiety [Unknown]
  - Somnolence [Unknown]
  - Infection [Unknown]
  - Weight increased [Unknown]
  - Somnolence [Unknown]
  - Psychiatric symptom [Unknown]
  - Pain [Unknown]
  - Dyspnoea [Unknown]
  - Depression [Unknown]
  - Fear [Unknown]
  - Emotional disorder [Unknown]
  - Dyspnoea [Unknown]
  - Nausea [Unknown]
  - Fatigue [Unknown]

NARRATIVE: CASE EVENT DATE: 2016
